FAERS Safety Report 22918323 (Version 3)
Quarter: 2023Q4

REPORT INFORMATION
  Report Type: Other
  Country: US (occurrence: US)
  Receive Date: 20230907
  Receipt Date: 20231224
  Transmission Date: 20240110
  Serious: No
  Sender: FDA-Public Use
  Company Number: US-TRAVERE-2023TVT00419

PATIENT
  Age: 69 Year
  Sex: Female

DRUGS (2)
  1. FILSPARI [Suspect]
     Active Substance: SPARSENTAN
     Indication: IgA nephropathy
     Route: 048
  2. FILSPARI [Suspect]
     Active Substance: SPARSENTAN
     Dosage: 400 MG
     Route: 048
     Dates: end: 20231115

REACTIONS (7)
  - Fatigue [Unknown]
  - Peripheral swelling [None]
  - Joint swelling [None]
  - Hypoaesthesia [Unknown]
  - Paraesthesia [Unknown]
  - Urticaria [Unknown]
  - Balance disorder [Unknown]
